FAERS Safety Report 5457410-3 (Version None)
Quarter: 2007Q3

REPORT INFORMATION
  Report Type: 
  Country: None (occurrence: None)
  Receive Date: 20070918
  Receipt Date: 20070502
  Transmission Date: 20080115
  Serious: Yes (Other)
  Sender: FDA-Public Use
  Company Number: US-ASTRAZENECA-2007UW03829

PATIENT
  Age: 480 Month
  Sex: Female

DRUGS (3)
  1. SEROQUEL [Suspect]
     Indication: BIPOLAR DISORDER
     Route: 048
     Dates: start: 19990101
  2. SEROQUEL [Suspect]
     Indication: DEPRESSION
     Route: 048
     Dates: start: 19990101
  3. RISPERDAL [Suspect]
     Dosage: 4-6 MG DAILY
     Route: 048
     Dates: start: 19980216, end: 20030723

REACTIONS (2)
  - PANCREATITIS ACUTE [None]
  - TYPE 1 DIABETES MELLITUS [None]
